FAERS Safety Report 7780565-2 (Version None)
Quarter: 2011Q3

REPORT INFORMATION
  Report Type: 
  Country: None (occurrence: None)
  Receive Date: 20110923
  Receipt Date: 20110910
  Transmission Date: 20111222
  Serious: Yes (Other)
  Sender: FDA-Public Use
  Company Number: 2011AP002039

PATIENT
  Age: 53 Year
  Sex: Female

DRUGS (2)
  1. LITHIUM CARBONATE [Suspect]
     Indication: BIPOLAR DISORDER
     Dosage: 750 MG;QD
  2. LEVOTHYROXINE SODIUM [Concomitant]

REACTIONS (5)
  - BLOOD PRESSURE DIASTOLIC INCREASED [None]
  - NEPHROSCLEROSIS [None]
  - NEPHROTIC SYNDROME [None]
  - KIDNEY FIBROSIS [None]
  - ANTIPSYCHOTIC DRUG LEVEL ABOVE THERAPEUTIC [None]
